FAERS Safety Report 8862145 (Version 1)
Quarter: 2012Q4

REPORT INFORMATION
  Report Type: 
  Country: US (occurrence: US)
  Receive Date: 20121026
  Receipt Date: 20121026
  Transmission Date: 20130627
  Serious: Yes (Other)
  Sender: FDA-Public Use
  Company Number: US-PFIZER INC-2012267297

PATIENT
  Age: 64 Year
  Sex: Male
  Weight: 63.49 kg

DRUGS (6)
  1. NORVASC [Suspect]
     Indication: HYPERTENSION
     Dosage: 10 mg, 1x/day
     Route: 048
  2. LISINOPRIL [Concomitant]
     Indication: HYPERTENSION
     Dosage: 20 mg, UNK
  3. PLAVIX [Concomitant]
     Dosage: 75 mg, UNK
  4. PROAIR INHALER [Concomitant]
     Dosage: UNK
  5. ADVIL [Concomitant]
     Dosage: UNK
  6. ATENOLOL [Concomitant]
     Dosage: 50 mg, 1x/day

REACTIONS (1)
  - Head and neck cancer [Unknown]
